FAERS Safety Report 6164728-8 (Version None)
Quarter: 2009Q2

REPORT INFORMATION
  Report Type: 
  Country: None (occurrence: None)
  Receive Date: 20090423
  Receipt Date: 20090415
  Transmission Date: 20091009
  Serious: Yes (Hospitalization)
  Sender: FDA-Public Use
  Company Number: US-BAYER-200917434NA

PATIENT
  Sex: Female

DRUGS (1)
  1. AVELOX [Suspect]
     Indication: SINUSITIS
     Dosage: TOTAL DAILY DOSE: 400 MG  UNIT DOSE: 400 MG
     Dates: start: 20090326

REACTIONS (5)
  - ANAPHYLACTIC REACTION [None]
  - ARRHYTHMIA [None]
  - INSOMNIA [None]
  - PALPITATIONS [None]
  - RESPIRATORY ARREST [None]
